FAERS Safety Report 17284176 (Version 1)
Quarter: 2020Q1

REPORT INFORMATION
  Report Type: Spontaneous
  Country: US (occurrence: US)
  Receive Date: 20200117
  Receipt Date: 20200117
  Transmission Date: 20200409
  Serious: No
  Sender: FDA-Public Use
  Company Number: US-JNJFOC-20200101816

PATIENT

DRUGS (1)
  1. PEPCID [Suspect]
     Active Substance: FAMOTIDINE
     Indication: DYSPEPSIA
     Dosage: 10 OR 20 MG PER DAY USUALLY IN THE EVENING OR A LITTLE MORE AS NEEDED
     Route: 048

REACTIONS (3)
  - Wrong technique in product usage process [Unknown]
  - Incorrect product administration duration [Unknown]
  - Incorrect dose administered [Unknown]
